FAERS Safety Report 10379950 (Version 2)
Quarter: 2014Q3

REPORT INFORMATION
  Report Type: Report from Study
  Country: FR (occurrence: FR)
  Receive Date: 20140813
  Receipt Date: 20140815
  Transmission Date: 20150326
  Serious: Yes (Death, Other)
  Sender: FDA-Public Use
  Company Number: FR-ROCHE-1447371

PATIENT
  Age: 17 Year
  Sex: Male

DRUGS (1)
  1. ZELBORAF [Suspect]
     Active Substance: VEMURAFENIB
     Indication: METASTATIC MALIGNANT MELANOMA
     Dosage: 240 MG
     Route: 048
     Dates: start: 20131122

REACTIONS (7)
  - Off label use [Unknown]
  - Nausea [Unknown]
  - Abdominal pain upper [Unknown]
  - Disease progression [Fatal]
  - Vomiting [Unknown]
  - Headache [Unknown]
  - Skin reaction [Unknown]

NARRATIVE: CASE EVENT DATE: 20131129
